FAERS Safety Report 7097879-4 (Version None)
Quarter: 2010Q4

REPORT INFORMATION
  Report Type: 
  Country: None (occurrence: None)
  Receive Date: 20101112
  Receipt Date: 20101101
  Transmission Date: 20110411
  Serious: Yes (Hospitalization)
  Sender: FDA-Public Use
  Company Number: US-JNJFOC-20101101388

PATIENT
  Sex: Female
  Weight: 71.67 kg

DRUGS (1)
  1. STELARA [Suspect]
     Indication: PSORIASIS
     Route: 058

REACTIONS (3)
  - ABDOMINAL PAIN [None]
  - LOCALISED OEDEMA [None]
  - PULMONARY OEDEMA [None]
